FAERS Safety Report 19831206 (Version 1)
Quarter: 2021Q3

REPORT INFORMATION
  Report Type: Spontaneous
  Country: US (occurrence: US)
  Receive Date: 20210915
  Receipt Date: 20210915
  Transmission Date: 20211014
  Serious: Yes (Other)
  Sender: FDA-Public Use
  Company Number: None

PATIENT
  Age: 51 Year
  Sex: Female
  Weight: 58.5 kg

DRUGS (15)
  1. GINGER. [Concomitant]
     Active Substance: GINGER
  2. BROCCOLI SEED EXTRACT [Concomitant]
  3. VITAMIN D3 [Concomitant]
     Active Substance: CHOLECALCIFEROL
  4. ELDERBERRY [Concomitant]
     Active Substance: HERBALS
  5. NAC [Concomitant]
  6. BETA GLUCAN [Concomitant]
     Active Substance: BETA GLUCAN
  7. SELENIUM [Concomitant]
     Active Substance: SELENIUM
  8. GLUTATHIONE [Concomitant]
     Active Substance: GLUTATHIONE
  9. REGEN?COV [Suspect]
     Active Substance: CASIRIVIMAB\IMDEVIMAB
     Indication: COVID-19 PROPHYLAXIS
     Dates: start: 20210914, end: 20210914
  10. CURCUMIN [Concomitant]
     Active Substance: CURCUMIN
  11. DIGESTIVE ENZYMES [Concomitant]
     Active Substance: UNSPECIFIED INGREDIENT
  12. ALPHA LIPOIC ACID [Concomitant]
     Active Substance: .ALPHA.-LIPOIC ACID
  13. PROBIOTICS [Concomitant]
     Active Substance: PROBIOTICS NOS
  14. OLIVE LEAF EXTRACT [Concomitant]
  15. ZINC. [Concomitant]
     Active Substance: ZINC

REACTIONS (7)
  - Sensory disturbance [None]
  - Migraine [None]
  - Headache [None]
  - Dizziness [None]
  - Fatigue [None]
  - Nausea [None]
  - Hyperhidrosis [None]

NARRATIVE: CASE EVENT DATE: 20210914
